FAERS Safety Report 6811343-6 (Version None)
Quarter: 2010Q2

REPORT INFORMATION
  Report Type: 
  Country: None (occurrence: None)
  Receive Date: 20100630
  Receipt Date: 20100216
  Transmission Date: 20101027
  Serious: No
  Sender: FDA-Public Use
  Company Number: US-AMGEN-KDL385176

PATIENT
  Sex: Female
  Weight: 54 kg

DRUGS (10)
  1. PROCRIT [Suspect]
     Indication: DRUG USE FOR UNKNOWN INDICATION
     Route: 058
     Dates: start: 20060901
  2. CLIMARA [Concomitant]
     Route: 062
  3. ASAPHEN [Concomitant]
  4. VITAMIN B-12 [Concomitant]
  5. CENTRUM SILVER [Concomitant]
  6. CALCIUM WITH VITAMIN D [Concomitant]
  7. SUDAFED 12 HOUR [Concomitant]
  8. TYLENOL [Concomitant]
  9. TRAMADOL [Concomitant]
  10. IRON [Concomitant]

REACTIONS (3)
  - GASTROINTESTINAL TELANGIECTASIA [None]
  - NEUROPATHY PERIPHERAL [None]
  - THERAPEUTIC RESPONSE DECREASED [None]
